FAERS Safety Report 5432214-6 (Version None)
Quarter: 2007Q3

REPORT INFORMATION
  Report Type: 
  Country: None (occurrence: None)
  Receive Date: 20070830
  Receipt Date: 20070820
  Transmission Date: 20080115
  Serious: Yes (Other)
  Sender: FDA-Public Use
  Company Number: SE-PFIZER INC-2007059614

PATIENT
  Age: 49 Year

DRUGS (1)
  1. SALAZOPYRIN EN [Suspect]
     Indication: RHEUMATOID ARTHRITIS
     Dosage: FREQ:DAILY
     Route: 048

REACTIONS (1)
  - INTESTINAL FUNCTIONAL DISORDER [None]
